FAERS Safety Report 7253286-2 (Version None)
Quarter: 2011Q1

REPORT INFORMATION
  Report Type: 
  Country: None (occurrence: None)
  Receive Date: 20110129
  Receipt Date: 20100215
  Transmission Date: 20110831
  Serious: No
  Sender: FDA-Public Use
  Company Number: US-ABBOTT-10P-163-0626722-00

PATIENT
  Age: 19 Year
  Sex: Female

DRUGS (18)
  1. AXERT [Concomitant]
     Indication: PRODUCT USED FOR UNKNOWN INDICATION
  2. ANAPROX [Concomitant]
     Indication: INFLAMMATION
  3. MIDRIN [Concomitant]
     Indication: MIGRAINE
  4. EPINEPHRINE [Concomitant]
     Indication: PRODUCT USED FOR UNKNOWN INDICATION
  5. VERAMYST INHALER [Concomitant]
     Indication: PRODUCT USED FOR UNKNOWN INDICATION
  6. HUMIRA [Suspect]
     Indication: CROHN'S DISEASE
     Route: 058
     Dates: start: 20091217, end: 20100101
  7. INTAL [Concomitant]
     Indication: PRODUCT USED FOR UNKNOWN INDICATION
  8. LOMOTIL [Concomitant]
     Indication: PRODUCT USED FOR UNKNOWN INDICATION
  9. PRILOSEC [Concomitant]
     Indication: PRODUCT USED FOR UNKNOWN INDICATION
  10. HUMIRA [Suspect]
     Indication: IRRITABLE BOWEL SYNDROME
     Dates: start: 20100101
  11. PREVENTIL INHALER [Concomitant]
     Indication: PRODUCT USED FOR UNKNOWN INDICATION
  12. SINGULAIR [Concomitant]
     Indication: PRODUCT USED FOR UNKNOWN INDICATION
  13. LETHICIN [Concomitant]
     Indication: PRODUCT USED FOR UNKNOWN INDICATION
  14. ATARAX [Concomitant]
     Indication: PRODUCT USED FOR UNKNOWN INDICATION
  15. MOTRIN [Concomitant]
     Indication: PRODUCT USED FOR UNKNOWN INDICATION
  16. ALLEGRA [Concomitant]
     Indication: PRODUCT USED FOR UNKNOWN INDICATION
  17. LIBRAX [Concomitant]
     Indication: IRRITABLE BOWEL SYNDROME
     Dosage: IRRITABLE BOWEL 1 CAP UPT TO 4 PRN 1-4 CAP/DAY
  18. ADVIR INHALER [Concomitant]
     Indication: PRODUCT USED FOR UNKNOWN INDICATION

REACTIONS (5)
  - ABDOMINAL PAIN [None]
  - OSTEOARTHRITIS [None]
  - GAIT DISTURBANCE [None]
  - ARTHRALGIA [None]
  - URTICARIA [None]
